FAERS Safety Report 13379884 (Version 2)
Quarter: 2017Q2

REPORT INFORMATION
  Report Type: Spontaneous
  Country: JP (occurrence: JP)
  Receive Date: 20170328
  Receipt Date: 20170424
  Transmission Date: 20170830
  Serious: Yes (Hospitalization)
  Sender: FDA-Public Use
  Company Number: JP-ELI_LILLY_AND_COMPANY-JP201703009086

PATIENT
  Age: 66 Year
  Sex: Male
  Weight: 56 kg

DRUGS (8)
  1. NORVASC [Concomitant]
     Active Substance: AMLODIPINE BESYLATE
     Indication: HYPERTENSION
     Dosage: UNK
     Route: 048
     Dates: start: 20140117
  2. PANVITAN                           /05664201/ [Concomitant]
     Active Substance: VITAMINS
     Dosage: UNK
     Route: 048
     Dates: end: 20151015
  3. SENNOSIDE A+B [Concomitant]
     Active Substance: SENNOSIDES A AND B
     Indication: CONSTIPATION
     Dosage: UNK
     Route: 048
     Dates: start: 20140117
  4. ALIMTA [Suspect]
     Active Substance: PEMETREXED DISODIUM
     Indication: NON-SMALL CELL LUNG CANCER STAGE IIIA
     Dosage: 500 MG/M2, EVERY 21 DAYS
     Route: 042
     Dates: start: 20150518, end: 20150810
  5. ALIMTA [Suspect]
     Active Substance: PEMETREXED DISODIUM
     Dosage: 500 MG/M2, EVERY 21 DAYS
     Route: 042
     Dates: start: 20150924, end: 20151015
  6. CISPLATIN. [Concomitant]
     Active Substance: CISPLATIN
     Indication: NON-SMALL CELL LUNG CANCER STAGE IIIA
     Dosage: 130 MG, EVERY 21 DAYS
     Route: 042
     Dates: start: 20150518, end: 20150810
  7. METHYCOBAL [Concomitant]
     Active Substance: METHYLCOBALAMIN
     Dosage: 1 UNK, UNK
     Route: 030
  8. HUSTAZOL                           /06152401/ [Concomitant]
     Indication: COUGH
     Dosage: UNK
     Route: 048
     Dates: start: 20140117

REACTIONS (1)
  - Interstitial lung disease [Recovering/Resolving]

NARRATIVE: CASE EVENT DATE: 20151019
